FAERS Safety Report 13676819 (Version 1)
Quarter: 2017Q2

REPORT INFORMATION
  Report Type: Spontaneous
  Country: US (occurrence: US)
  Receive Date: 20170621
  Receipt Date: 20170621
  Transmission Date: 20170830
  Serious: Yes (Hospitalization)
  Sender: FDA-Public Use
  Company Number: None

PATIENT
  Age: 72 Year
  Sex: Male

DRUGS (6)
  1. NOVOLOG [Concomitant]
     Active Substance: INSULIN ASPART
  2. LONSURF [Suspect]
     Active Substance: TIPIRACIL HYDROCHLORIDE\TRIFLURIDINE
     Indication: COLON CANCER
     Route: 048
     Dates: start: 20170428
  3. LOSARTAN. [Concomitant]
     Active Substance: LOSARTAN
  4. LANTUS [Concomitant]
     Active Substance: INSULIN GLARGINE
  5. LOVASTATIN. [Concomitant]
     Active Substance: LOVASTATIN
  6. CELEXA [Concomitant]
     Active Substance: CITALOPRAM HYDROBROMIDE

REACTIONS (1)
  - Diarrhoea [None]
